FAERS Safety Report 17184298 (Version 1)
Quarter: 2019Q4

REPORT INFORMATION
  Report Type: Spontaneous
  Country: US (occurrence: US)
  Receive Date: 20191220
  Receipt Date: 20191220
  Transmission Date: 20200122
  Serious: No
  Sender: FDA-Public Use
  Company Number: US-RECKITT BENCKISER HEALTHCARE INT LIMITED-RB-86802-2019

PATIENT
  Age: 73 Year
  Sex: Female

DRUGS (4)
  1. DELSYM [Suspect]
     Active Substance: DEXTROMETHORPHAN
     Indication: COUGH
     Dosage: TOOK AN UNKNOWN AMOUNT AT BID FREQUENCY
     Route: 065
     Dates: start: 20190614
  2. ROBITUSSIN 12 HOUR COUGH RELIEF [Suspect]
     Active Substance: DEXTROMETHORPHAN HYDROBROMIDE
     Indication: COUGH
     Dosage: UNK
     Route: 065
  3. ROBITUSSIN 12 HOUR COUGH RELIEF [Suspect]
     Active Substance: DEXTROMETHORPHAN HYDROBROMIDE
     Indication: SNEEZING
  4. DELSYM [Suspect]
     Active Substance: DEXTROMETHORPHAN
     Indication: SNEEZING

REACTIONS (1)
  - Drug ineffective [Not Recovered/Not Resolved]
